FAERS Safety Report 7715248-8 (Version None)
Quarter: 2011Q3

REPORT INFORMATION
  Report Type: 
  Country: None (occurrence: None)
  Receive Date: 20110829
  Receipt Date: 20110824
  Transmission Date: 20111222
  Serious: Yes (Other)
  Sender: FDA-Public Use
  Company Number: DK-PFIZER INC-2010073940

PATIENT
  Age: 54 Year
  Sex: Female
  Weight: 65 kg

DRUGS (3)
  1. ALPRAZOLAM [Suspect]
     Indication: CLAUSTROPHOBIA
     Dosage: 2 MG/DAY
     Route: 048
     Dates: start: 20100427, end: 20100428
  2. TYSABRI [Interacting]
     Indication: MULTIPLE SCLEROSIS
     Dosage: 300 MG, UNK
     Route: 042
     Dates: start: 20070817
  3. ALPRAZOLAM [Interacting]
     Dosage: 1.5 MG, UNK
     Dates: start: 20100701

REACTIONS (3)
  - DRUG INTERACTION [None]
  - HAEMATOMA [None]
  - PAIN IN EXTREMITY [None]
